FAERS Safety Report 9782048 (Version 1)
Quarter: 2013Q4

REPORT INFORMATION
  Report Type: Spontaneous
  Country: DZ (occurrence: DZ)
  Receive Date: 20131226
  Receipt Date: 20131226
  Transmission Date: 20140711
  Serious: Yes (Other)
  Sender: FDA-Public Use
  Company Number: DZ-ROCHE-1322694

PATIENT
  Sex: Female

DRUGS (3)
  1. HERCEPTIN [Suspect]
     Indication: BREAST CANCER METASTATIC
     Route: 042
     Dates: end: 201312
  2. GEMCITABINE [Suspect]
     Indication: BREAST CANCER METASTATIC
     Route: 042
     Dates: end: 201312
  3. LAPATINIB [Suspect]
     Indication: BREAST CANCER METASTATIC
     Route: 042
     Dates: end: 201312

REACTIONS (3)
  - Skin lesion [Not Recovered/Not Resolved]
  - Oedema peripheral [Not Recovered/Not Resolved]
  - Erythema [Not Recovered/Not Resolved]
